FAERS Safety Report 16532785 (Version 1)
Quarter: 2019Q3

REPORT INFORMATION
  Report Type: Spontaneous
  Country: US (occurrence: US)
  Receive Date: 20190703
  Receipt Date: 20190703
  Transmission Date: 20191004
  Serious: Yes (Hospitalization)
  Sender: FDA-Public Use
  Company Number: None

PATIENT
  Age: 50 Year
  Sex: Female

DRUGS (5)
  1. LISINOPRIL, VIT D, TRAMADOL [Concomitant]
  2. JARDIANCE, FENOFIBRATE, SYNTHROID, CLONIDINE, LIPITOR, GLIMEPIRIDE, [Concomitant]
  3. HUMATROPE [Suspect]
     Active Substance: SOMATROPIN
     Indication: HYPOPITUITARISM
     Route: 058
     Dates: start: 20070209
  4. ATENOLOL, LASIX, TRAMADOL, VICTOZA [Concomitant]
  5. LEVEMIR, VIT B12, SPIRONOLACT, VESCEPA [Concomitant]

REACTIONS (2)
  - Organ failure [None]
  - Blood growth hormone decreased [None]

NARRATIVE: CASE EVENT DATE: 20190628
